FAERS Safety Report 4745734-4 (Version None)
Quarter: 2005Q3

REPORT INFORMATION
  Report Type: 
  Country: None (occurrence: None)
  Receive Date: 20050811
  Receipt Date: 20050127
  Transmission Date: 20060218
  Serious: Yes (Other)
  Sender: FDA-Public Use
  Company Number: SGB1-2004-00521

PATIENT
  Sex: 0

DRUGS (1)
  1. MIDODRINE HCL [Suspect]

REACTIONS (1)
  - MYOCARDIAL INFARCTION [None]
